FAERS Safety Report 8081404-5 (Version None)
Quarter: 2012Q1

REPORT INFORMATION
  Report Type: 
  Country: None (occurrence: None)
  Receive Date: 20120130
  Receipt Date: 20120123
  Transmission Date: 20120608
  Serious: Yes (Hospitalization)
  Sender: FDA-Public Use
  Company Number: FR-PFIZER INC-K201000541

PATIENT
  Age: 60 Year
  Sex: Female

DRUGS (12)
  1. RAMIPRIL [Suspect]
     Dosage: 2.5 MG, 1X/DAY
     Route: 048
     Dates: start: 20090801, end: 20091201
  2. PRIMPERAN TAB [Concomitant]
     Dosage: UNK
  3. SPIRAMYCIN [Concomitant]
     Dosage: UNK
  4. ASPIRIN [Concomitant]
     Dosage: UNK
  5. PREDNISOLONE [Suspect]
     Dosage: 5 MG, 1X/DAY
     Route: 048
     Dates: start: 20090901
  6. NEXIUM [Concomitant]
     Dosage: UNK
  7. MABTHERA [Suspect]
     Dosage: UNK
     Route: 042
     Dates: start: 20090102, end: 20090429
  8. ISOSORBIDE DINITRATE [Concomitant]
     Dosage: UNK
  9. AMIODARONE HCL [Suspect]
     Dosage: 200 MG, 1X/DAY
     Route: 048
     Dates: start: 20090801
  10. DANAZOL [Suspect]
     Dosage: UNK
     Dates: start: 20091101, end: 20091101
  11. VALACICLOVIR [Suspect]
     Dosage: 500 MG, 2X/DAY
     Route: 048
     Dates: start: 20090101, end: 20091201
  12. FUROSEMIDE [Concomitant]
     Dosage: UNK

REACTIONS (3)
  - CARDIAC FAILURE [None]
  - INTERSTITIAL LUNG DISEASE [None]
  - PLEURAL EFFUSION [None]
